FAERS Safety Report 21608999 (Version 2)
Quarter: 2023Q1

REPORT INFORMATION
  Report Type: Spontaneous
  Country: PL (occurrence: PL)
  Receive Date: 20221117
  Receipt Date: 20230112
  Transmission Date: 20230417
  Serious: No
  Sender: FDA-Public Use
  Company Number: PL-PFIZER INC-PV202200095593

PATIENT
  Age: 32 Year
  Sex: Female

DRUGS (4)
  1. METHYLPREDNISOLONE [Suspect]
     Active Substance: METHYLPREDNISOLONE
     Indication: Skin lesion
     Dosage: 32 MG, DAILY
     Route: 048
  2. METHYLPREDNISOLONE [Suspect]
     Active Substance: METHYLPREDNISOLONE
     Indication: Urticaria
  3. DESLORATADINE [Suspect]
     Active Substance: DESLORATADINE
     Indication: Skin lesion
     Dosage: 20 MG, QD
     Route: 048
  4. DEXAMETHASONE [Suspect]
     Active Substance: DEXAMETHASONE
     Indication: Skin lesion
     Dosage: 8 MG, QD
     Route: 030

REACTIONS (1)
  - Drug ineffective [Recovered/Resolved]
